FAERS Safety Report 24054460 (Version 1)
Quarter: 2024Q3

REPORT INFORMATION
  Report Type: Report from Study
  Country: US (occurrence: US)
  Receive Date: 20240705
  Receipt Date: 20240705
  Transmission Date: 20241016
  Serious: Yes (Other)
  Sender: RANBAXY
  Company Number: US-SUN PHARMACEUTICAL INDUSTRIES LTD-2024R1-455198

PATIENT
  Age: 39 Year
  Sex: Male

DRUGS (5)
  1. MONTELUKAST [Suspect]
     Active Substance: MONTELUKAST SODIUM
     Indication: Urticaria cholinergic
     Route: 065
  2. SULFASALAZINE [Suspect]
     Active Substance: SULFASALAZINE
     Indication: Urticaria cholinergic
     Route: 065
  3. HYDROXYCHLOROQUINE [Suspect]
     Active Substance: HYDROXYCHLOROQUINE
     Indication: Urticaria cholinergic
     Route: 065
  4. OMALIZUMAB [Suspect]
     Active Substance: OMALIZUMAB
     Indication: Urticaria cholinergic
     Dosage: 300 MILLIGRAM, EVERY 4 WEEKS
     Route: 065
  5. DAPSONE [Suspect]
     Active Substance: DAPSONE
     Indication: Urticaria cholinergic
     Route: 065

REACTIONS (1)
  - Therapy non-responder [Unknown]
